FAERS Safety Report 23759240 (Version 1)
Quarter: 2024Q2

REPORT INFORMATION
  Report Type: Spontaneous
  Country: US (occurrence: None)
  Receive Date: 20240418
  Receipt Date: 20240418
  Transmission Date: 20240716
  Serious: No
  Sender: FDA-Public Use
  Company Number: US-ROCHE-3351912

PATIENT
  Sex: Female
  Weight: 71.732 kg

DRUGS (3)
  1. ESBRIET [Suspect]
     Active Substance: PIRFENIDONE
     Indication: Idiopathic pulmonary fibrosis
     Dosage: 3 PILLS, 3 TIMES A DAY ;ONGOING: NO
     Route: 065
     Dates: start: 20220623
  2. ESBRIET [Suspect]
     Active Substance: PIRFENIDONE
     Dosage: 2 PILLS, 3 TIMES A DAY
     Route: 065
  3. CELLCEPT [Suspect]
     Active Substance: MYCOPHENOLATE MOFETIL
     Indication: Autoimmune arthritis
     Dosage: 5 PILL, 5 TIMES A DAY
     Route: 065

REACTIONS (3)
  - Off label use [Unknown]
  - Decreased appetite [Unknown]
  - Decreased appetite [Unknown]
